FAERS Safety Report 4898462-9 (Version None)
Quarter: 2006Q1

REPORT INFORMATION
  Report Type: 
  Country: None (occurrence: None)
  Receive Date: 20060127
  Receipt Date: 20060112
  Transmission Date: 20060701
  Serious: Yes (Hospitalization)
  Sender: FDA-Public Use
  Company Number: US200601002105

PATIENT
  Age: 69 Year
  Sex: Female

DRUGS (3)
  1. FORTEO [Suspect]
     Indication: OSTEOPOROSIS
     Dates: start: 20050601
  2. FORTEO PEN (250 MCG/ML) (FORTEO PEN 250MCG/MLN (2ML)) PEN, DISPOSABLE [Concomitant]
  3. HORMONES AND RELATED AGENTS [Concomitant]

REACTIONS (3)
  - HIP ARTHROPLASTY [None]
  - LOWER LIMB FRACTURE [None]
  - PHARMACEUTICAL PRODUCT COMPLAINT [None]
